FAERS Safety Report 9772677 (Version 2)
Quarter: 2013Q4

REPORT INFORMATION
  Report Type: Spontaneous
  Country: GB (occurrence: GB)
  Receive Date: 20131219
  Receipt Date: 20131219
  Transmission Date: 20140711
  Serious: Yes (Other)
  Sender: FDA-Public Use
  Company Number: GB-PFIZER INC-2013337022

PATIENT
  Age: 52 Year
  Sex: Male
  Weight: 80 kg

DRUGS (4)
  1. LIPITOR [Suspect]
     Dosage: 40 MG, DAILY
     Route: 048
     Dates: start: 2010, end: 201311
  2. ACETYLSALICYLIC ACID [Concomitant]
     Dosage: 75 MG, 1X/DAY
     Route: 048
     Dates: start: 2010
  3. LANSOPRAZOLE [Concomitant]
     Dosage: 30 MG, 1X/DAY
     Route: 048
     Dates: start: 2010
  4. VERAPAMIL [Concomitant]
     Indication: MYOCARDIAL ISCHAEMIA
     Dosage: 240 MG, 1X/DAY
     Route: 048
     Dates: start: 2010

REACTIONS (1)
  - Tendon disorder [Recovering/Resolving]
